FAERS Safety Report 9067364 (Version 1)
Quarter: 2013Q1

REPORT INFORMATION
  Report Type: Spontaneous
  Country: CH (occurrence: CH)
  Receive Date: 20130214
  Receipt Date: 20130214
  Transmission Date: 20140127
  Serious: Yes (Other)
  Sender: FDA-Public Use
  Company Number: CH-SANOFI-AVENTIS-2012SA042899

PATIENT
  Age: 26 Year
  Sex: Female

DRUGS (8)
  1. PLAQUENIL [Suspect]
     Indication: PRODUCT USED FOR UNKNOWN INDICATION
     Dosage: STRENGTH- 200MG
     Route: 065
  2. PREDNISONE [Suspect]
     Indication: PRODUCT USED FOR UNKNOWN INDICATION
     Route: 065
  3. CELLCEPT [Suspect]
     Indication: SYSTEMIC LUPUS ERYTHEMATOSUS
     Dosage: STRENGTYH- 500 MG TABLET
     Route: 065
     Dates: start: 20120418
  4. MABTHERA [Suspect]
     Indication: SYSTEMIC LUPUS ERYTHEMATOSUS
     Dosage: FORM- INFUSION AMPOULES
     Route: 065
     Dates: start: 201202
  5. BACTRIM FORTE [Suspect]
     Indication: PRODUCT USED FOR UNKNOWN INDICATION
     Dosage: STRENGTH- 800 MG/160MG
     Route: 065
  6. CALCIMAGON-D3 [Concomitant]
  7. AUGMENTIN [Concomitant]
     Indication: UPPER RESPIRATORY TRACT INFECTION
     Dates: start: 201203, end: 201203
  8. FOLIC ACID [Concomitant]

REACTIONS (2)
  - Abortion spontaneous complicated [Unknown]
  - Exposure during pregnancy [Unknown]
